FAERS Safety Report 8622735-7 (Version None)
Quarter: 2012Q3

REPORT INFORMATION
  Report Type: 
  Country: None (occurrence: None)
  Receive Date: 20120827
  Receipt Date: 20120818
  Transmission Date: 20120928
  Serious: Yes (Other)
  Sender: FDA-Public Use
  Company Number: PT-JNJFOC-20120801428

PATIENT
  Sex: Female

DRUGS (1)
  1. ORTHO EVRA [Suspect]
     Indication: POLYP
     Route: 062
     Dates: start: 20120726

REACTIONS (7)
  - MENSTRUATION IRREGULAR [None]
  - POLLAKIURIA [None]
  - DRUG DOSE OMISSION [None]
  - VASODILATATION [None]
  - OFF LABEL USE [None]
  - BREAST CYST [None]
  - BREAST SWELLING [None]
